FAERS Safety Report 4377247-6 (Version None)
Quarter: 2004Q2

REPORT INFORMATION
  Report Type: 
  Country: None (occurrence: None)
  Receive Date: 20040609
  Receipt Date: 20040318
  Transmission Date: 20050107
  Serious: No
  Sender: FDA-Public Use
  Company Number: 2004205421US

PATIENT
  Age: 36 Year
  Sex: Female

DRUGS (1)
  1. BEXTRA [Suspect]
     Indication: ARTHRITIS
     Dosage: 10 MG, QD
     Dates: start: 20040301

REACTIONS (6)
  - BACK PAIN [None]
  - CHEST PAIN [None]
  - CHILLS [None]
  - LYMPHADENOPATHY [None]
  - MUSCLE SPASMS [None]
  - PHARYNGITIS [None]
